FAERS Safety Report 8124643-7 (Version None)
Quarter: 2012Q1

REPORT INFORMATION
  Report Type: 
  Country: None (occurrence: None)
  Receive Date: 20120209
  Receipt Date: 20120209
  Transmission Date: 20120608
  Serious: Yes (Other)
  Sender: FDA-Public Use
  Company Number: None

PATIENT
  Age: 104 Month
  Sex: Male
  Weight: 27.215 kg

DRUGS (2)
  1. SERTRALINE HYDROCHLORIDE [Concomitant]
     Indication: AFFECT LABILITY
     Dosage: 50 MG
     Route: 048
     Dates: start: 20111228, end: 20120207
  2. LAMOTRIGINE [Suspect]
     Indication: NERVOUS SYSTEM DISORDER
     Dosage: 25 MG
     Route: 048
     Dates: start: 20120206, end: 20120208

REACTIONS (5)
  - ABNORMAL BEHAVIOUR [None]
  - HYPERHIDROSIS [None]
  - SEROTONIN SYNDROME [None]
  - AGITATION [None]
  - SCREAMING [None]
